FAERS Safety Report 7877866-6 (Version None)
Quarter: 2011Q4

REPORT INFORMATION
  Report Type: 
  Country: None (occurrence: None)
  Receive Date: 20111031
  Receipt Date: 20111031
  Transmission Date: 20120403
  Serious: Yes (Death)
  Sender: FDA-Public Use
  Company Number: None

PATIENT
  Sex: Female
  Weight: 68.038 kg

DRUGS (1)
  1. DESOGESTREL AND ETHINYL ESTRADIOL [Suspect]
     Indication: CONTRACEPTION
     Dosage: 1 PILL
     Route: 048
     Dates: start: 20110401, end: 20110913

REACTIONS (8)
  - INTRACRANIAL VENOUS SINUS THROMBOSIS [None]
  - BRAIN STEM HAEMORRHAGE [None]
  - INFLUENZA LIKE ILLNESS [None]
  - CONFUSIONAL STATE [None]
  - PUPIL FIXED [None]
  - BRAIN DEATH [None]
  - MASS [None]
  - CEREBRAL HAEMORRHAGE [None]
